FAERS Safety Report 10272401 (Version 2)
Quarter: 2015Q3

REPORT INFORMATION
  Report Type: Spontaneous
  Country: FR (occurrence: FR)
  Receive Date: 20140702
  Receipt Date: 20150703
  Transmission Date: 20151125
  Serious: Yes (Other)
  Sender: FDA-Public Use
  Company Number: FR-ROCHE-1427114

PATIENT
  Age: 29 Year
  Sex: Female

DRUGS (23)
  1. CERTICAN [Suspect]
     Active Substance: EVEROLIMUS
     Indication: PROPHYLAXIS AGAINST GRAFT VERSUS HOST DISEASE
     Dosage: 1MG DAILY, THEN 1.5MG DAILY
     Route: 048
     Dates: start: 20140105
  2. OXYNORM [Concomitant]
     Active Substance: OXYCODONE HYDROCHLORIDE
  3. DIFFU K [Concomitant]
     Active Substance: POTASSIUM CHLORIDE
  4. LEVEMIR [Concomitant]
     Active Substance: INSULIN DETEMIR
  5. CELLCEPT [Suspect]
     Active Substance: MYCOPHENOLATE MOFETIL\MYCOPHENOLATE MOFETIL HYDROCHLORIDE
     Route: 065
     Dates: start: 20130715, end: 20130731
  6. LIPANTHYL [Concomitant]
     Active Substance: FENOFIBRATE
     Route: 065
     Dates: start: 201402
  7. ORACILLINE [Concomitant]
     Active Substance: PENICILLIN V
  8. VFEND [Concomitant]
     Active Substance: VORICONAZOLE
  9. ROVALCYTE [Concomitant]
     Active Substance: VALGANCICLOVIR HYDROCHLORIDE
     Route: 065
  10. KEPPRA [Concomitant]
     Active Substance: LEVETIRACETAM
  11. URBANYL [Concomitant]
     Active Substance: CLOBAZAM
  12. INEXIUM [Concomitant]
     Active Substance: ESOMEPRAZOLE
  13. CERTICAN [Suspect]
     Active Substance: EVEROLIMUS
     Route: 065
     Dates: start: 20130731
  14. CORTANCYL [Suspect]
     Active Substance: PREDNISONE
     Indication: PROPHYLAXIS AGAINST GRAFT VERSUS HOST DISEASE
     Route: 048
     Dates: start: 20140105
  15. NOVONORM [Concomitant]
     Active Substance: REPAGLINIDE
  16. EUPRESSYL [Concomitant]
     Active Substance: URAPIDIL
  17. ISOPTINE [Concomitant]
     Active Substance: VERAPAMIL HYDROCHLORIDE
  18. DAFALGAN [Concomitant]
     Active Substance: ACETAMINOPHEN
  19. SPASFON (FRANCE) [Concomitant]
     Active Substance: PHLOROGLUCINOL
  20. ATARAX [Concomitant]
     Active Substance: HYDROXYZINE\HYDROXYZINE HYDROCHLORIDE
  21. CELLCEPT [Suspect]
     Active Substance: MYCOPHENOLATE MOFETIL\MYCOPHENOLATE MOFETIL HYDROCHLORIDE
     Indication: PROPHYLAXIS AGAINST GRAFT VERSUS HOST DISEASE
     Route: 048
     Dates: start: 20140105, end: 20140507
  22. CERTICAN [Suspect]
     Active Substance: EVEROLIMUS
     Dosage: IN THE MORNING AND IN THE EVENING (LAST ASSAY OF CERTICAN AROUND 5, LOWER LIMIT).
     Route: 065
  23. DUROGESIC [Concomitant]
     Active Substance: FENTANYL

REACTIONS (2)
  - Hypertriglyceridaemia [Not Recovered/Not Resolved]
  - Hypercholesterolaemia [Not Recovered/Not Resolved]

NARRATIVE: CASE EVENT DATE: 20140414
